FAERS Safety Report 22394901 (Version 1)
Quarter: 2023Q2

REPORT INFORMATION
  Report Type: Spontaneous
  Country: US (occurrence: US)
  Receive Date: 20230601
  Receipt Date: 20230601
  Transmission Date: 20230722
  Serious: Yes (Other)
  Sender: FDA-Public Use
  Company Number: US-APIL-2311560US

PATIENT
  Age: 20 Year
  Sex: Female
  Weight: 88.45 kg

DRUGS (6)
  1. VRAYLAR [Suspect]
     Active Substance: CARIPRAZINE
     Indication: Major depression
     Dosage: 3 MG, QD
     Route: 048
     Dates: start: 20230323, end: 20230411
  2. VRAYLAR [Suspect]
     Active Substance: CARIPRAZINE
     Indication: Obsessive-compulsive symptom
     Dosage: 1.5 MG, QD
     Route: 048
     Dates: start: 202301, end: 20230323
  3. PROZAC [Concomitant]
     Active Substance: FLUOXETINE HYDROCHLORIDE
  4. WELLBUTRIN [Concomitant]
     Active Substance: BUPROPION HYDROCHLORIDE
  5. TRAZODONE [Concomitant]
     Active Substance: TRAZODONE HYDROCHLORIDE
  6. VYVANSE [Concomitant]
     Active Substance: LISDEXAMFETAMINE DIMESYLATE

REACTIONS (3)
  - Suicidal ideation [Not Recovered/Not Resolved]
  - Depression [Unknown]
  - Off label use [Unknown]

NARRATIVE: CASE EVENT DATE: 20230101
